FAERS Safety Report 7375566-2 (Version None)
Quarter: 2011Q1

REPORT INFORMATION
  Report Type: 
  Country: None (occurrence: None)
  Receive Date: 20110325
  Receipt Date: 20090930
  Transmission Date: 20110831
  Serious: Yes (Other)
  Sender: FDA-Public Use
  Company Number: US-BAYER-200934664NA

PATIENT
  Sex: Female
  Weight: 82.54 kg

DRUGS (3)
  1. LEVAQUIN [Concomitant]
     Indication: PRODUCT USED FOR UNKNOWN INDICATION
  2. TRASYLOL [Suspect]
     Indication: CORONARY ARTERY BYPASS
     Dosage: UNK
     Route: 042
     Dates: start: 20040609
  3. ZITHROMAX [Concomitant]
     Indication: PRODUCT USED FOR UNKNOWN INDICATION

REACTIONS (8)
  - DEPRESSION [None]
  - MYOCARDIAL INFARCTION [None]
  - ANXIETY [None]
  - ANHEDONIA [None]
  - INJURY [None]
  - FEAR [None]
  - PAIN [None]
  - UNEVALUABLE EVENT [None]
